FAERS Safety Report 5030821-6 (Version None)
Quarter: 2006Q2

REPORT INFORMATION
  Report Type: 
  Country: None (occurrence: None)
  Receive Date: 20060619
  Receipt Date: 20060614
  Transmission Date: 20061013
  Serious: Yes (Life-Threatening)
  Sender: FDA-Public Use
  Company Number: NO-2006-001325

PATIENT
  Age: 44 Year
  Sex: Female
  Weight: 48 kg

DRUGS (4)
  1. LEVONORGESTREL [Suspect]
     Indication: CONTRACEPTION
     Dosage: 20 UG/DAY, CONT, INTRA-UTERINE
     Route: 015
     Dates: start: 20040721, end: 20040902
  2. REMERON [Concomitant]
  3. ZYPREXA [Concomitant]
  4. EFFEXOR [Concomitant]

REACTIONS (21)
  - ABDOMINAL PAIN UPPER [None]
  - ABNORMAL FAECES [None]
  - ALOPECIA [None]
  - ANOREXIA [None]
  - ANXIETY [None]
  - CHROMATURIA [None]
  - DEPRESSION [None]
  - DIARRHOEA [None]
  - FAECES DISCOLOURED [None]
  - GASTROINTESTINAL HYPERMOTILITY [None]
  - HAIR DISORDER [None]
  - HYPERHIDROSIS [None]
  - MUCOSAL DISCOLOURATION [None]
  - MUCOUS MEMBRANE DISORDER [None]
  - NAUSEA [None]
  - PALPITATIONS [None]
  - SUICIDE ATTEMPT [None]
  - TREMOR [None]
  - URINE ODOUR ABNORMAL [None]
  - UTERINE PAIN [None]
  - VAGINAL DISCHARGE [None]
